FAERS Safety Report 17845397 (Version 1)
Quarter: 2020Q2

REPORT INFORMATION
  Report Type: Report from Study
  Country: None (occurrence: US)
  Receive Date: 20200601
  Receipt Date: 20200601
  Transmission Date: 20200714
  Serious: No
  Sender: FDA-Public Use
  Company Number: US-BIOVITRUM-2019US2146

PATIENT
  Sex: Female

DRUGS (1)
  1. KINERET [Suspect]
     Active Substance: ANAKINRA
     Indication: RHEUMATOID ARTHRITIS
     Route: 058
     Dates: start: 20190702

REACTIONS (5)
  - Feeling of body temperature change [Unknown]
  - Malaise [Unknown]
  - Painful respiration [Unknown]
  - Influenza like illness [Unknown]
  - Product dose omission [Recovered/Resolved]
